FAERS Safety Report 19028965 (Version 6)
Quarter: 2021Q3

REPORT INFORMATION
  Report Type: Spontaneous
  Country: US (occurrence: US)
  Receive Date: 20210319
  Receipt Date: 20210827
  Transmission Date: 20211014
  Serious: Yes (Hospitalization, Other)
  Sender: FDA-Public Use
  Company Number: US-GLOBAL BLOOD THERAPEUTICS INC-US-GBT-21-00802

PATIENT
  Age: 34 Year
  Sex: Male

DRUGS (3)
  1. GLUTAMIDE [Concomitant]
     Indication: SICKLE CELL DISEASE
     Dosage: NOT PROVIDED
  2. EXJADE [Concomitant]
     Active Substance: DEFERASIROX
     Indication: IRON OVERLOAD
  3. OXBRYTA [Suspect]
     Active Substance: VOXELOTOR
     Indication: SICKLE CELL DISEASE
     Route: 048
     Dates: start: 20200512

REACTIONS (8)
  - Pain [Not Recovered/Not Resolved]
  - Gastroenteritis viral [Recovered/Resolved]
  - Sickle cell anaemia with crisis [Unknown]
  - Sickle cell anaemia with crisis [Not Recovered/Not Resolved]
  - Pain [Not Recovered/Not Resolved]
  - Sickle cell anaemia with crisis [Recovered/Resolved]
  - Weight decreased [Unknown]
  - Product dose omission issue [Unknown]

NARRATIVE: CASE EVENT DATE: 2021
